FAERS Safety Report 13376370 (Version 1)
Quarter: 2017Q1

REPORT INFORMATION
  Report Type: Spontaneous
  Country: US (occurrence: US)
  Receive Date: 20170328
  Receipt Date: 20170328
  Transmission Date: 20170429
  Serious: Yes (Other)
  Sender: FDA-Public Use
  Company Number: US-BRISTOL-MYERS SQUIBB COMPANY-BMS-2017-024812

PATIENT
  Sex: Male

DRUGS (1)
  1. ABILIFY [Suspect]
     Active Substance: ARIPIPRAZOLE
     Indication: PRODUCT USED FOR UNKNOWN INDICATION
     Dosage: UNK
     Route: 065
     Dates: start: 201312, end: 201609

REACTIONS (6)
  - Obsessive-compulsive disorder [Unknown]
  - Anxiety [Unknown]
  - Suicidal ideation [Unknown]
  - Gambling disorder [Unknown]
  - Emotional disorder [Unknown]
  - Pain [Unknown]
